FAERS Safety Report 18648568 (Version 4)
Quarter: 2021Q2

REPORT INFORMATION
  Report Type: Spontaneous
  Country: JP (occurrence: JP)
  Receive Date: 20201222
  Receipt Date: 20210409
  Transmission Date: 20210717
  Serious: Yes (Other)
  Sender: FDA-Public Use
  Company Number: JP-ELI_LILLY_AND_COMPANY-JP202012010001

PATIENT
  Age: 57 Year
  Sex: Male
  Weight: 84 kg

DRUGS (6)
  1. TRULICITY [Suspect]
     Active Substance: DULAGLUTIDE
     Indication: TYPE 2 DIABETES MELLITUS
     Dosage: 0.75 MG, WEEKLY (1/W)
     Route: 058
  2. FAVIPIRAVIR [Concomitant]
     Active Substance: FAVIPIRAVIR
     Dosage: 800 UNK
  3. DEXAMETHASONE. [Suspect]
     Active Substance: DEXAMETHASONE
     Indication: COVID-19
     Dosage: 6 MG, DAILY
     Route: 065
  4. METFORMIN HYDROCHLORIDE. [Concomitant]
     Active Substance: METFORMIN HYDROCHLORIDE
     Indication: TYPE 2 DIABETES MELLITUS
     Dosage: 1000 MG, DAILY
  5. TRESIBA [Concomitant]
     Active Substance: INSULIN DEGLUDEC
     Dosage: UNK
  6. FAVIPIRAVIR [Concomitant]
     Active Substance: FAVIPIRAVIR
     Indication: COVID-19
     Dosage: 1800 MG, BID

REACTIONS (3)
  - Diabetes mellitus inadequate control [Recovered/Resolved]
  - Deep vein thrombosis [Unknown]
  - COVID-19 pneumonia [Unknown]

NARRATIVE: CASE EVENT DATE: 202012
